FAERS Safety Report 6587930-X (Version None)
Quarter: 2010Q1

REPORT INFORMATION
  Report Type: 
  Country: None (occurrence: None)
  Receive Date: 20100217
  Receipt Date: 20100217
  Transmission Date: 20100710
  Serious: Yes (Hospitalization)
  Sender: FDA-Public Use
  Company Number: None

PATIENT
  Age: 56 Year
  Sex: Male
  Weight: 170.18 kg

DRUGS (1)
  1. ETOPOSIDE [Suspect]
     Dosage: 126 EVERY DAY IV
     Route: 042
     Dates: start: 20091217, end: 20091217

REACTIONS (2)
  - INJECTION SITE OEDEMA [None]
  - LOCALISED OEDEMA [None]
